FAERS Safety Report 7796280-5 (Version None)
Quarter: 2011Q4

REPORT INFORMATION
  Report Type: 
  Country: None (occurrence: None)
  Receive Date: 20111004
  Receipt Date: 20110917
  Transmission Date: 20120403
  Serious: Yes (Death, Hospitalization, Other)
  Sender: FDA-Public Use
  Company Number: PHHY2011MX66912

PATIENT
  Sex: Male

DRUGS (2)
  1. TRILEPTAL [Suspect]
     Indication: EPILEPSY
     Dosage: 10ML  (6G/100ML MG) DAILY
     Dates: start: 20110607
  2. TRILEPTAL [Suspect]
     Dosage: 20 ML (6 G/100ML) DALIY
     Dates: start: 20110710, end: 20110801

REACTIONS (8)
  - CONFUSIONAL STATE [None]
  - DIABETES MELLITUS [None]
  - DRY GANGRENE [None]
  - MOVEMENT DISORDER [None]
  - HALLUCINATION [None]
  - PNEUMONIA [None]
  - NIGHTMARE [None]
  - SEPTIC SHOCK [None]
